FAERS Safety Report 8446472-7 (Version None)
Quarter: 2012Q2

REPORT INFORMATION
  Report Type: 
  Country: None (occurrence: None)
  Receive Date: 20120618
  Receipt Date: 20120405
  Transmission Date: 20120825
  Serious: No
  Sender: FDA-Public Use
  Company Number: US-TEVA-332053USA

PATIENT
  Sex: Male

DRUGS (2)
  1. ACTIQ [Suspect]
     Indication: INTERVERTEBRAL DISC PROTRUSION
     Route: 002
  2. ACTIQ [Suspect]
     Indication: BENIGN NEOPLASM

REACTIONS (2)
  - PAIN [None]
  - OFF LABEL USE [None]
